FAERS Safety Report 7622720-8 (Version None)
Quarter: 2011Q3

REPORT INFORMATION
  Report Type: 
  Country: None (occurrence: None)
  Receive Date: 20110712
  Receipt Date: 20110701
  Transmission Date: 20111222
  Serious: Yes (Disabling, Other)
  Sender: FDA-Public Use
  Company Number: ACO_20201_2010

PATIENT
  Age: 60 Year
  Sex: Male
  Weight: 79.4 kg

DRUGS (4)
  1. BACLOFEN [Suspect]
     Indication: PRODUCT USED FOR UNKNOWN INDICATION
     Dosage: ORAL
     Route: 048
     Dates: start: 20110601, end: 20110101
  2. ANTIVERT [Suspect]
     Indication: PRODUCT USED FOR UNKNOWN INDICATION
     Dosage: ORAL
     Route: 048
     Dates: start: 20110601, end: 20110101
  3. AMPYRA [Suspect]
     Indication: GAIT DISTURBANCE
     Dosage: 10 MG, BID, ORAL
     Route: 048
     Dates: start: 20100501, end: 20110601
  4. FLOMAX /00889901/ (MORNIFLUMATE) [Concomitant]

REACTIONS (2)
  - ABASIA [None]
  - DRUG INEFFECTIVE [None]
